FAERS Safety Report 21441308 (Version 2)
Quarter: 2022Q4

REPORT INFORMATION
  Report Type: Spontaneous
  Country: US (occurrence: US)
  Receive Date: 20221011
  Receipt Date: 20221025
  Transmission Date: 20230113
  Serious: Yes (Other)
  Sender: FDA-Public Use
  Company Number: US-INCYTE CORPORATION-2022IN009675

PATIENT

DRUGS (1)
  1. JAKAFI [Suspect]
     Active Substance: RUXOLITINIB
     Indication: Polycythaemia vera
     Dosage: 5 MILLIGRAM, BID
     Route: 048
     Dates: start: 20211008, end: 20221006

REACTIONS (4)
  - Polycythaemia vera [Unknown]
  - Chloroma [Unknown]
  - Acute myeloid leukaemia [Unknown]
  - Disease progression [Unknown]
